FAERS Safety Report 24623600 (Version 2)
Quarter: 2024Q4

REPORT INFORMATION
  Report Type: Spontaneous
  Country: NL (occurrence: NL)
  Receive Date: 20241115
  Receipt Date: 20241212
  Transmission Date: 20250115
  Serious: Yes (Other)
  Sender: RANBAXY
  Company Number: NL-LRB-01005940

PATIENT
  Age: 71 Year
  Sex: Male
  Weight: 97 kg

DRUGS (1)
  1. ROSUVASTATIN [Suspect]
     Active Substance: ROSUVASTATIN
     Indication: Blood cholesterol
     Dosage: 1 X PER DAY 1 PIECE
     Route: 065
     Dates: start: 20240501, end: 20240912

REACTIONS (3)
  - Stoma site discharge [Recovered/Resolved]
  - Dermatitis bullous [Recovered/Resolved]
  - Pruritus [Recovered/Resolved]
